FAERS Safety Report 14147845 (Version 1)
Quarter: 2017Q4

REPORT INFORMATION
  Report Type: Spontaneous
  Country: US (occurrence: US)
  Receive Date: 20171031
  Receipt Date: 20171031
  Transmission Date: 20180321
  Serious: No
  Sender: FDA-Public Use
  Company Number: US-TARO-2017TAR00793

PATIENT
  Age: 74 Year
  Sex: Male
  Weight: 86.17 kg

DRUGS (7)
  1. NAFTIFINE HYDROCHLORIDE CREAM USP 2% [Suspect]
     Active Substance: NAFTIFINE HYDROCHLORIDE
     Indication: FUNGAL INFECTION
     Dosage: UNK UNK, 1X/DAY AT NIGHT
  2. CALCIPOTRIENE. [Concomitant]
     Active Substance: CALCIPOTRIENE
  3. WARFARIN [Concomitant]
     Active Substance: WARFARIN
     Dosage: 5 MG, 1X/DAY
  4. METOPROLOL ER [Concomitant]
     Active Substance: METOPROLOL SUCCINATE
     Dosage: 50 MG, 1X/DAY
  5. RAMIPRIL. [Concomitant]
     Active Substance: RAMIPRIL
     Dosage: 5 MG, 1X/DAY
  6. NAFTIFINE HYDROCHLORIDE CREAM USP 2% [Suspect]
     Active Substance: NAFTIFINE HYDROCHLORIDE
     Indication: NAIL INFECTION
     Dosage: UNK UNK, 1X/DAY AT NIGHT
     Route: 061
     Dates: start: 201709
  7. SIMVASTATIN. [Concomitant]
     Active Substance: SIMVASTATIN
     Dosage: 40 MG, 1X/DAY

REACTIONS (3)
  - Bacterial infection [Unknown]
  - Skin exfoliation [Not Recovered/Not Resolved]
  - Product storage error [Recovered/Resolved]

NARRATIVE: CASE EVENT DATE: 201709
